FAERS Safety Report 14410541 (Version 6)
Quarter: 2019Q3

REPORT INFORMATION
  Report Type: Report from Study
  Country: US (occurrence: US)
  Receive Date: 20180119
  Receipt Date: 20190808
  Transmission Date: 20191004
  Serious: Yes (Hospitalization, Other)
  Sender: FDA-Public Use
  Company Number: PHEH2018US001314

PATIENT
  Age: 6 Year
  Sex: Male
  Weight: 16.7 kg

DRUGS (7)
  1. FLUDARABINE [Concomitant]
     Active Substance: FLUDARABINE PHOSPHATE
     Indication: CHEMOTHERAPY
     Route: 065
  2. CLINDAMYCIN. [Concomitant]
     Active Substance: CLINDAMYCIN
     Indication: NEUTROPENIA
     Dosage: 13 MG/KG, Q8H
     Route: 042
  3. CEFEPIME [Concomitant]
     Active Substance: CEFEPIME HYDROCHLORIDE
     Indication: NEUTROPENIA
     Dosage: 50 MG/KG, Q8H
     Route: 042
  4. KYMRIAH [Suspect]
     Active Substance: TISAGENLECLEUCEL
     Indication: B-CELL TYPE ACUTE LEUKAEMIA
     Dosage: UNK UNK, ONCE/SINGLE
     Route: 041
     Dates: start: 20180103
  5. CYCLOPHOSPHAMIDE. [Concomitant]
     Active Substance: CYCLOPHOSPHAMIDE
     Indication: CHEMOTHERAPY
     Route: 065
  6. MICAFUNGIN. [Concomitant]
     Active Substance: MICAFUNGIN SODIUM
     Indication: NEUTROPENIA
     Dosage: 1 MG/KG, Q12H
     Route: 042
  7. LEVETIRACETAM. [Concomitant]
     Active Substance: LEVETIRACETAM
     Indication: SEIZURE PROPHYLAXIS
     Dosage: 10 MG/KG, BID
     Route: 042

REACTIONS (18)
  - B-lymphocyte count [Not Recovered/Not Resolved]
  - Headache [Unknown]
  - Cytokine release syndrome [Recovered/Resolved]
  - Tachycardia [Unknown]
  - Red blood cell sedimentation rate increased [Unknown]
  - Depressed level of consciousness [Unknown]
  - Hypotension [Unknown]
  - C-reactive protein increased [Unknown]
  - Cytopenia [Unknown]
  - Neutrophil count decreased [Recovered/Resolved]
  - Pyrexia [Unknown]
  - Serum ferritin increased [Unknown]
  - Encephalopathy [Recovered/Resolved]
  - Neurotoxicity [Recovered/Resolved]
  - Hypogammaglobulinaemia [Recovered/Resolved]
  - Tachypnoea [Unknown]
  - Confusional state [Unknown]
  - Delirium [Unknown]

NARRATIVE: CASE EVENT DATE: 20180103
